FAERS Safety Report 7413482-8 (Version None)
Quarter: 2011Q2

REPORT INFORMATION
  Report Type: 
  Country: None (occurrence: None)
  Receive Date: 20110405
  Receipt Date: 20110330
  Transmission Date: 20111010
  Serious: Yes (Hospitalization)
  Sender: FDA-Public Use
  Company Number: 2010SP006068

PATIENT
  Age: 37 Year
  Sex: Female
  Weight: 104.3273 kg

DRUGS (2)
  1. NUVARING [Suspect]
     Indication: CONTRACEPTION
     Dates: start: 20070901, end: 20080201
  2. COUMADIN [Suspect]
     Indication: DEEP VEIN THROMBOSIS
     Dosage: 5 MG
     Dates: start: 20080101

REACTIONS (13)
  - DEEP VEIN THROMBOSIS [None]
  - ACCIDENT AT WORK [None]
  - THROMBOPHLEBITIS SUPERFICIAL [None]
  - IMPAIRED WORK ABILITY [None]
  - BACK PAIN [None]
  - ROSACEA [None]
  - HYPERHOMOCYSTEINAEMIA [None]
  - CHOLECYSTITIS [None]
  - MENORRHAGIA [None]
  - DERMAL CYST [None]
  - POST THROMBOTIC SYNDROME [None]
  - VULVOVAGINAL DISCOMFORT [None]
  - ANTIPHOSPHOLIPID SYNDROME [None]
